FAERS Safety Report 6391886-2 (Version None)
Quarter: 2009Q4

REPORT INFORMATION
  Report Type: 
  Country: None (occurrence: None)
  Receive Date: 20091007
  Receipt Date: 20090928
  Transmission Date: 20100525
  Serious: Yes (Other)
  Sender: FDA-Public Use
  Company Number: US-JNJFOC-20061006313

PATIENT
  Sex: Male

DRUGS (7)
  1. RISPERDAL [Suspect]
     Indication: SCHIZOPHRENIA
     Route: 048
  2. ZYPREXA [Suspect]
     Indication: SCHIZOPHRENIA
     Route: 065
  3. SEROQUEL [Suspect]
     Indication: INSOMNIA
     Route: 065
  4. ABILIFY [Suspect]
     Indication: SCHIZOPHRENIA
     Route: 065
  5. TRAZODONE [Suspect]
     Indication: SCHIZOPHRENIA
     Route: 065
  6. KLONOPIN [Suspect]
     Indication: SCHIZOPHRENIA
     Route: 065
  7. VIAGRA [Suspect]
     Indication: ERECTILE DYSFUNCTION
     Route: 065

REACTIONS (2)
  - ERECTILE DYSFUNCTION [None]
  - TYPE 2 DIABETES MELLITUS [None]
